FAERS Safety Report 12127199 (Version 1)
Quarter: 2016Q1

REPORT INFORMATION
  Report Type: Spontaneous
  Country: US (occurrence: US)
  Receive Date: 20160229
  Receipt Date: 20160229
  Transmission Date: 20160526
  Serious: Yes (Hospitalization, Other)
  Sender: FDA-Public Use
  Company Number: US-SA-2015SA173034

PATIENT
  Age: 60 Year
  Sex: Female

DRUGS (11)
  1. NEXIUM [Concomitant]
     Active Substance: ESOMEPRAZOLE MAGNESIUM
  2. PROZAC [Concomitant]
     Active Substance: FLUOXETINE HYDROCHLORIDE
  3. NORVASC [Concomitant]
     Active Substance: AMLODIPINE BESYLATE
  4. AUBAGIO [Suspect]
     Active Substance: TERIFLUNOMIDE
     Indication: MULTIPLE SCLEROSIS
     Route: 048
  5. BACLOFEN. [Concomitant]
     Active Substance: BACLOFEN
  6. DEXILANT [Concomitant]
     Active Substance: DEXLANSOPRAZOLE
  7. AUBAGIO [Suspect]
     Active Substance: TERIFLUNOMIDE
     Indication: MULTIPLE SCLEROSIS
     Route: 048
  8. LORTAB [Concomitant]
     Active Substance: ACETAMINOPHEN\HYDROCODONE BITARTRATE
  9. HYDROCHLOROTHIAZIDE/TRIAMTERENE [Concomitant]
  10. DETROL LA [Concomitant]
     Active Substance: TOLTERODINE TARTRATE
  11. PROZAC [Concomitant]
     Active Substance: FLUOXETINE HYDROCHLORIDE

REACTIONS (13)
  - Abdominal pain upper [Unknown]
  - Neck pain [Unknown]
  - Alopecia [Unknown]
  - Hypokalaemia [Unknown]
  - Fatigue [Unknown]
  - Gait disturbance [Unknown]
  - Dehydration [Unknown]
  - Depression [Unknown]
  - Abdominal discomfort [Unknown]
  - Drug dose omission [Unknown]
  - Back pain [Unknown]
  - Multiple sclerosis relapse [Unknown]
  - Oedema peripheral [Unknown]
